FAERS Safety Report 17873283 (Version 2)
Quarter: 2020Q2

REPORT INFORMATION
  Report Type: Report from Study
  Country: MY (occurrence: MY)
  Receive Date: 20200608
  Receipt Date: 20200622
  Transmission Date: 20200714
  Serious: Yes (Hospitalization)
  Sender: FDA-Public Use
  Company Number: MY-NOVOPROD-731617

PATIENT
  Age: 73 Year
  Sex: Male
  Weight: 88 kg

DRUGS (1)
  1. SEMAGLUTIDE B 3.0 MG/ML PDS290 [Suspect]
     Active Substance: SEMAGLUTIDE
     Indication: OBESITY
     Dosage: 2.4 MG, QW
     Route: 058
     Dates: start: 20190703

REACTIONS (2)
  - Cholecystitis acute [Not Recovered/Not Resolved]
  - Cholelithiasis [Recovering/Resolving]

NARRATIVE: CASE EVENT DATE: 20200520
